FAERS Safety Report 4950723-0 (Version None)
Quarter: 2006Q1

REPORT INFORMATION
  Report Type: 
  Country: None (occurrence: None)
  Receive Date: 20060321
  Receipt Date: 20060321
  Transmission Date: 20060701
  Serious: No
  Sender: FDA-Public Use
  Company Number: None

PATIENT
  Sex: Male
  Weight: 77.5651 kg

DRUGS (1)
  1. PREGABALIN    100MG   PFIZER [Suspect]
     Indication: NEURALGIA
     Dosage: 100MG  TID   PO
     Route: 048
     Dates: start: 20060209, end: 20060221

REACTIONS (6)
  - CONFUSIONAL STATE [None]
  - FALL [None]
  - PHARYNGEAL ERYTHEMA [None]
  - THROAT IRRITATION [None]
  - TONGUE DISORDER [None]
  - TONGUE DRY [None]
